FAERS Safety Report 15000129 (Version 1)
Quarter: 2018Q2

REPORT INFORMATION
  Report Type: Spontaneous
  Country: US (occurrence: US)
  Receive Date: 20180612
  Receipt Date: 20180612
  Transmission Date: 20180711
  Serious: No
  Sender: FDA-Public Use
  Company Number: US-PERRIGO-17US030261

PATIENT
  Sex: Female

DRUGS (1)
  1. AMMONIUM LACTATE. [Suspect]
     Active Substance: AMMONIUM LACTATE
     Indication: PROPHYLAXIS
     Dosage: UNKNOWN, 2 X DAILY
     Route: 061
     Dates: start: 201711, end: 201711

REACTIONS (2)
  - Dry skin [Recovered/Resolved]
  - Off label use [Recovered/Resolved]

NARRATIVE: CASE EVENT DATE: 201711
